FAERS Safety Report 23770896 (Version 2)
Quarter: 2024Q2

REPORT INFORMATION
  Report Type: Report from Study
  Country: US (occurrence: US)
  Receive Date: 20240423
  Receipt Date: 20240501
  Transmission Date: 20240716
  Serious: Yes (Other)
  Sender: FDA-Public Use
  Company Number: US-AstraZeneca-CH-00607405A

PATIENT
  Sex: Female

DRUGS (1)
  1. SOLIRIS [Suspect]
     Active Substance: ECULIZUMAB
     Indication: Neuromyelitis optica spectrum disorder
     Dosage: UNK
     Route: 042

REACTIONS (8)
  - Neuromyelitis optica spectrum disorder [Unknown]
  - Disability [Unknown]
  - Insurance issue [Unknown]
  - Limb discomfort [Unknown]
  - Visual impairment [Unknown]
  - Hypoaesthesia [Unknown]
  - Pain in extremity [Unknown]
  - Paranoia [Unknown]
